FAERS Safety Report 12854064 (Version 1)
Quarter: 2016Q4

REPORT INFORMATION
  Report Type: Spontaneous
  Country: US (occurrence: US)
  Receive Date: 20161017
  Receipt Date: 20161017
  Transmission Date: 20170207
  Serious: No
  Sender: FDA-Public Use
  Company Number: US-PFIZER INC-2016478595

PATIENT
  Age: 43 Year
  Sex: Female
  Weight: 46.72 kg

DRUGS (4)
  1. ULTIMATE FLORA PROBIOTIC [Concomitant]
     Indication: IRRITABLE BOWEL SYNDROME
     Dosage: 15 BILLION UNITS, DAILY
     Dates: start: 2015
  2. EFFEXOR [Suspect]
     Active Substance: VENLAFAXINE HYDROCHLORIDE
     Indication: IRRITABLE BOWEL SYNDROME
     Dosage: 25 MG, 1X/DAY
     Route: 048
     Dates: start: 201604
  3. FLONASE [Concomitant]
     Active Substance: FLUTICASONE PROPIONATE
     Indication: SEASONAL ALLERGY
     Dosage: UNK, DAILY, 1 SPRAY EACH NOSTRIL
     Route: 045
     Dates: start: 201604
  4. FERROUS SULFATE. [Concomitant]
     Active Substance: FERROUS SULFATE
     Indication: ANAEMIA
     Dosage: 25 MG, DAILY, HALF OF 50 MG TABLET
     Route: 048
     Dates: start: 2014

REACTIONS (3)
  - Nausea [Recovering/Resolving]
  - Off label use [Not Recovered/Not Resolved]
  - Product use issue [Not Recovered/Not Resolved]

NARRATIVE: CASE EVENT DATE: 201604
